FAERS Safety Report 9020251 (Version 1)
Quarter: 2013Q1

REPORT INFORMATION
  Report Type: Spontaneous
  Country: US (occurrence: US)
  Receive Date: 20130119
  Receipt Date: 20130119
  Transmission Date: 20140127
  Serious: Yes (Disabling)
  Sender: FDA-Public Use
  Company Number: US-ALLERGAN-1209631US

PATIENT
  Age: 66 Year
  Sex: Female

DRUGS (16)
  1. BOTOX? [Suspect]
     Indication: MUSCLE SPASTICITY
     Dosage: 200 UNITS, SINGLE
     Route: 030
     Dates: start: 20111202, end: 20111202
  2. BOTOX? [Suspect]
     Dosage: 200 UNITS, SINGLE
     Route: 030
     Dates: start: 20110705, end: 20110705
  3. BOTOX? [Suspect]
     Dosage: 200 UNITS, SINGLE
     Route: 030
     Dates: start: 20110307, end: 20110307
  4. BOTOX? [Suspect]
     Dosage: 200 UNITS, SINGLE
     Route: 030
     Dates: start: 20101119, end: 20101119
  5. BOTOX? [Suspect]
     Dosage: 200 UNITS, SINGLE
     Route: 030
     Dates: start: 20100727, end: 20100727
  6. BOTOX? [Suspect]
     Dosage: 200 UNITS, SINGLE
     Route: 030
     Dates: start: 20100309, end: 20100309
  7. BOTOX? [Suspect]
     Dosage: 200 UNITS, SINGLE
     Route: 030
     Dates: start: 20091001, end: 20091001
  8. BOTOX? [Suspect]
     Dosage: 200 UNITS, SINGLE
     Route: 030
     Dates: start: 20090424, end: 20090424
  9. TRAZODONE [Concomitant]
     Dosage: UNK UNK, QPM
  10. ASPIRIN [Concomitant]
  11. LUTEINE [Concomitant]
  12. OMEGA                              /00661201/ [Concomitant]
  13. VITAMIN B-12 [Concomitant]
  14. VITAMIN D3 [Concomitant]
  15. AMPYRA [Concomitant]
     Indication: MULTIPLE SCLEROSIS
     Dosage: UNK
     Dates: start: 201011
  16. CHANTIX                            /05703001/ [Concomitant]
     Indication: TOBACCO USER
     Dosage: UNK
     Dates: start: 201112

REACTIONS (2)
  - Injection site pain [Not Recovered/Not Resolved]
  - Off label use [Unknown]
